FAERS Safety Report 5009095-8 (Version None)
Quarter: 2006Q2

REPORT INFORMATION
  Report Type: 
  Country: None (occurrence: None)
  Receive Date: 20060517
  Receipt Date: 20060504
  Transmission Date: 20061013
  Serious: Yes (Hospitalization)
  Sender: FDA-Public Use
  Company Number: 2006059768

PATIENT
  Age: 77 Year
  Sex: Male

DRUGS (5)
  1. LYRICA [Suspect]
     Indication: POST HERPETIC NEURALGIA
     Dosage: 75 MG (75 MG, 1 IN 1 D), ORAL
     Route: 048
     Dates: start: 20050101, end: 20060304
  2. DIGOXIN [Suspect]
     Indication: ILL-DEFINED DISORDER
     Dosage: ORAL
     Route: 048
     Dates: start: 20060217, end: 20060301
  3. SPIRIVA [Suspect]
     Indication: ILL-DEFINED DISORDER
     Dosage: INHALATION
     Route: 055
     Dates: start: 20060217
  4. SYMBICORT (BUDESONIDE, FORMOTEROL FUMARATE) [Suspect]
     Indication: ILL-DEFINED DISORDER
     Dosage: INHALATION
     Route: 055
     Dates: start: 20060217
  5. IRBESARTAN [Concomitant]

REACTIONS (14)
  - ACUTE MYOCARDIAL INFARCTION [None]
  - BULLOUS LUNG DISEASE [None]
  - CHRONIC OBSTRUCTIVE PULMONARY DISEASE [None]
  - CONDITION AGGRAVATED [None]
  - ENTEROBACTER INFECTION [None]
  - LEUKOCYTOCLASTIC VASCULITIS [None]
  - NECROSIS [None]
  - PLEURAL EFFUSION [None]
  - PNEUMONIA PNEUMOCOCCAL [None]
  - PNEUMOTHORAX [None]
  - PULMONARY BULLA [None]
  - RENAL FAILURE CHRONIC [None]
  - RIGHT VENTRICULAR FAILURE [None]
  - SEPSIS [None]
